FAERS Safety Report 4589005-8 (Version None)
Quarter: 2005Q1

REPORT INFORMATION
  Report Type: 
  Country: None (occurrence: None)
  Receive Date: 20050125
  Receipt Date: 20041014
  Transmission Date: 20050727
  Serious: No
  Sender: FDA-Public Use
  Company Number: USA041081200

PATIENT
  Age: 75 Year
  Sex: Female

DRUGS (4)
  1. FORTEO [Suspect]
     Indication: OSTEOPOROSIS
     Dates: start: 20040801
  2. MIACALCIN [Concomitant]
  3. CALCIUM CARBONATE W/VITAMIN D NOS [Concomitant]
  4. ESTROGENS CONJUGATED [Concomitant]

REACTIONS (4)
  - FEELING HOT [None]
  - JOINT SWELLING [None]
  - OEDEMA PERIPHERAL [None]
  - SENSATION OF HEAVINESS [None]
